FAERS Safety Report 13462283 (Version 1)
Quarter: 2017Q2

REPORT INFORMATION
  Report Type: Spontaneous
  Country: US (occurrence: US)
  Receive Date: 20170420
  Receipt Date: 20170420
  Transmission Date: 20170830
  Serious: No
  Sender: FDA-Public Use
  Company Number: US-BAUSCH-BL-2016-008282

PATIENT
  Age: 60 Year
  Sex: Female

DRUGS (2)
  1. ARESTIN [Suspect]
     Active Substance: MINOCYCLINE HYDROCHLORIDE
     Route: 050
     Dates: start: 20160322, end: 20160322
  2. ARESTIN [Suspect]
     Active Substance: MINOCYCLINE HYDROCHLORIDE
     Indication: PRODUCT USED FOR UNKNOWN INDICATION
     Route: 050
     Dates: start: 20160315, end: 20160315

REACTIONS (1)
  - Urticaria [Unknown]

NARRATIVE: CASE EVENT DATE: 20160405
